FAERS Safety Report 8525173-0 (Version None)
Quarter: 2012Q3

REPORT INFORMATION
  Report Type: 
  Country: None (occurrence: None)
  Receive Date: 20120720
  Receipt Date: 20120715
  Transmission Date: 20120928
  Serious: Yes (Hospitalization)
  Sender: FDA-Public Use
  Company Number: PHHY2012MX061775

PATIENT
  Sex: Female

DRUGS (4)
  1. RAMIPRIL [Concomitant]
     Indication: HYPERTENSION
     Dates: start: 20090101
  2. GABAPENTIN [Concomitant]
     Indication: PAIN IN EXTREMITY
     Dosage: 2 DF, UNK
     Dates: start: 20100101
  3. FELODIPINE [Concomitant]
     Indication: HYPERTENSION
     Dates: start: 20090101
  4. ZOLEDRONOC ACID [Suspect]
     Indication: OSTEOPOROSIS
     Dosage: 5 MG/100 ML PER YEAR
     Route: 042
     Dates: start: 20110901

REACTIONS (2)
  - PAIN IN EXTREMITY [None]
  - SCIATICA [None]
